FAERS Safety Report 14996329 (Version 2)
Quarter: 2019Q1

REPORT INFORMATION
  Report Type: Spontaneous
  Country: IT (occurrence: IT)
  Receive Date: 20180611
  Receipt Date: 20190103
  Transmission Date: 20190417
  Serious: Yes (Hospitalization, Other)
  Sender: FDA-Public Use
  Company Number: IT-MYLANLABS-2018M1038084

PATIENT
  Age: 50 Year
  Sex: Female

DRUGS (8)
  1. LANSOPRAZOLE. [Concomitant]
     Active Substance: LANSOPRAZOLE
     Indication: PROPHYLAXIS AGAINST GASTROINTESTINAL ULCER
     Dosage: 15 MG, UNK
     Route: 048
  2. LEVETIRACETAM. [Concomitant]
     Active Substance: LEVETIRACETAM
     Indication: EPILEPSY
     Dosage: 4 G, UNK
  3. SOLIFENACIN SUCCINATE. [Concomitant]
     Active Substance: SOLIFENACIN SUCCINATE
     Indication: URINARY INCONTINENCE
     Dosage: 5 MG, UNK
     Route: 048
  4. SULODEXIDE [Concomitant]
     Active Substance: SULODEXIDE
     Indication: SKIN ULCER
     Dosage: UNK
     Route: 048
  5. CLARITHROMYCIN. [Suspect]
     Active Substance: CLARITHROMYCIN
     Indication: ANTIBIOTIC THERAPY
     Dosage: 2000 MG, QD
     Route: 048
     Dates: start: 20180301, end: 20180307
  6. CARBAMAZEPINE. [Interacting]
     Active Substance: CARBAMAZEPINE
     Indication: EPILEPSY
     Dosage: 1200 MG, QD
     Route: 048
     Dates: start: 20090101
  7. PAROXETINE. [Concomitant]
     Active Substance: PAROXETINE
     Indication: ANTIDEPRESSANT THERAPY
     Dosage: 20 MG, UNK
     Route: 048
  8. FRISIUM [Concomitant]
     Active Substance: CLOBAZAM
     Indication: ANXIOLYTIC THERAPY
     Dosage: 30 MG, UNK
     Route: 048

REACTIONS (7)
  - Hyponatraemia [Recovering/Resolving]
  - Balance disorder [Recovering/Resolving]
  - Oscillopsia [Recovering/Resolving]
  - Labelled drug-drug interaction medication error [Unknown]
  - Ataxia [Recovering/Resolving]
  - Leukopenia [Recovering/Resolving]
  - Poverty of speech [Recovering/Resolving]

NARRATIVE: CASE EVENT DATE: 20180304
